FAERS Safety Report 7916711-7 (Version None)
Quarter: 2011Q4

REPORT INFORMATION
  Report Type: 
  Country: None (occurrence: None)
  Receive Date: 20111114
  Receipt Date: 20110802
  Transmission Date: 20120403
  Serious: Yes (Other)
  Sender: FDA-Public Use
  Company Number: 2011SP036654

PATIENT
  Sex: Female

DRUGS (6)
  1. PEG-INTRON [Suspect]
     Indication: HEPATITIS C
     Dates: start: 20011005, end: 20020419
  2. PEG-INTRON [Suspect]
     Indication: HEPATITIS C
     Dates: start: 20110728
  3. RIBAVIRIN [Suspect]
     Indication: HEPATITIS C
     Dates: start: 20110728
  4. RIBAVIRIN [Suspect]
     Indication: HEPATITIS C
     Dates: start: 20011005, end: 20020419
  5. INTRON A [Suspect]
     Indication: HEPATITIS C
     Dates: start: 20110728
  6. VICTRELIS [Suspect]
     Indication: HEPATITIS C
     Dates: start: 20110901

REACTIONS (29)
  - DIARRHOEA [None]
  - INCOHERENT [None]
  - RETINAL DETACHMENT [None]
  - BLOOD PRESSURE SYSTOLIC DECREASED [None]
  - RED BLOOD CELL COUNT DECREASED [None]
  - HALLUCINATION, AUDITORY [None]
  - HYPOTHYROIDISM [None]
  - IRRITABILITY [None]
  - STOMATITIS [None]
  - SPEECH DISORDER [None]
  - NEUROPATHY PERIPHERAL [None]
  - VOMITING [None]
  - PALLOR [None]
  - ARRHYTHMIA [None]
  - DYSARTHRIA [None]
  - HAEMORRHOIDS [None]
  - SOMNOLENCE [None]
  - TACHYCARDIA [None]
  - SINUS DISORDER [None]
  - BACK PAIN [None]
  - PRODUCT QUALITY ISSUE [None]
  - INSOMNIA [None]
  - INJECTION SITE RASH [None]
  - HAEMOGLOBIN DECREASED [None]
  - SNEEZING [None]
  - DIZZINESS [None]
  - SYNCOPE [None]
  - ASTHENIA [None]
  - FLATULENCE [None]
